FAERS Safety Report 6036095-1 (Version None)
Quarter: 2009Q1

REPORT INFORMATION
  Report Type: 
  Country: None (occurrence: None)
  Receive Date: 20090113
  Receipt Date: 20090106
  Transmission Date: 20090719
  Serious: Yes (Death)
  Sender: FDA-Public Use
  Company Number: US-AMGEN-KDL327507

PATIENT
  Age: 80 Year
  Sex: Male

DRUGS (3)
  1. PROCRIT [Suspect]
     Indication: ANAEMIA OF MALIGNANT DISEASE
     Route: 065
     Dates: start: 20080501
  2. THALIDOMIDE [Concomitant]
  3. TOPROL-XL [Concomitant]

REACTIONS (1)
  - DEATH [None]
